APPROVED DRUG PRODUCT: NICOTINE POLACRILEX
Active Ingredient: NICOTINE POLACRILEX
Strength: EQ 2MG BASE
Dosage Form/Route: GUM, CHEWING;BUCCAL
Application: A078699 | Product #001
Applicant: P AND L DEVELOPMENT LLC
Approved: Dec 29, 2008 | RLD: No | RS: No | Type: OTC